FAERS Safety Report 4591661-5 (Version None)
Quarter: 2005Q1

REPORT INFORMATION
  Report Type: 
  Country: None (occurrence: None)
  Receive Date: 20050218
  Receipt Date: 20050209
  Transmission Date: 20050727
  Serious: Yes (Other)
  Sender: FDA-Public Use
  Company Number: 2004095387

PATIENT
  Age: 40 Year
  Sex: Female

DRUGS (1)
  1. XALATAN [Suspect]
     Indication: PIGMENTARY GLAUCOMA
     Dosage: 1 DROP (1 DROP, EVERY NIGHT), OPHTHALMIC
     Route: 047
     Dates: start: 19980101

REACTIONS (5)
  - CYANOPSIA [None]
  - HEADACHE [None]
  - MYOPIA [None]
  - VISUAL ACUITY REDUCED [None]
  - VISUAL FIELD DEFECT [None]
